FAERS Safety Report 8393061-9 (Version None)
Quarter: 2012Q2

REPORT INFORMATION
  Report Type: 
  Country: None (occurrence: None)
  Receive Date: 20120525
  Receipt Date: 20120525
  Transmission Date: 20120825
  Serious: Yes (Hospitalization)
  Sender: FDA-Public Use
  Company Number: None

PATIENT
  Age: 81 Year
  Sex: Male
  Weight: 107.9 kg

DRUGS (2)
  1. CARBOPLATIN [Suspect]
     Dosage: 180 MG ONCE IV
     Route: 042
     Dates: start: 20120320, end: 20120320
  2. DEXAMETHASONE [Suspect]
     Dosage: 20 MG ONCE IV
     Route: 042

REACTIONS (2)
  - MYOCARDIAL INFARCTION [None]
  - ANGINA PECTORIS [None]
